FAERS Safety Report 4306497-X (Version None)
Quarter: 2004Q1

REPORT INFORMATION
  Report Type: 
  Country: None (occurrence: None)
  Receive Date: 20040225
  Receipt Date: 20030801
  Transmission Date: 20041129
  Serious: No
  Sender: FDA-Public Use
  Company Number: US-BRISTOL-MYERS SQUIBB COMPANY-12360079

PATIENT
  Age: 70 Year
  Sex: Female
  Weight: 50 kg

DRUGS (2)
  1. EXCEDRIN (MIGRAINE) [Suspect]
     Indication: MIGRAINE
     Dosage: TAKEN ^3-4 TIMES A MONTH^
     Route: 048
  2. EXCEDRIN (MIGRAINE) [Suspect]
     Indication: PAIN
     Dosage: TAKEN ^3-4 TIMES A MONTH^
     Route: 048

REACTIONS (1)
  - DRUG INEFFECTIVE [None]
